FAERS Safety Report 9906668 (Version 2)
Quarter: 2014Q1

REPORT INFORMATION
  Report Type: Spontaneous
  Country: US (occurrence: US)
  Receive Date: 20140218
  Receipt Date: 20140218
  Transmission Date: 20141002
  Serious: Yes (Hospitalization)
  Sender: FDA-Public Use
  Company Number: US-B.I. PHARMACEUTICALS,INC./RIDGEFIELD-2013-BI-20118BP

PATIENT
  Age: 80 Year
  Sex: Female
  Weight: 62.6 kg

DRUGS (1)
  1. PRADAXA [Suspect]
     Indication: ANTICOAGULANT THERAPY
     Dosage: 300 MG
     Route: 048
     Dates: start: 20120111, end: 20120731

REACTIONS (8)
  - Gastrointestinal haemorrhage [Unknown]
  - Haemorrhagic stroke [Unknown]
  - Cerebral haemorrhage [Unknown]
  - Renal haemorrhage [Unknown]
  - Epistaxis [Unknown]
  - Vaginal haemorrhage [Unknown]
  - Myocardial infarction [Unknown]
  - Respiratory failure [Unknown]
